FAERS Safety Report 10571011 (Version 2)
Quarter: 2014Q4

REPORT INFORMATION
  Report Type: Report from Study
  Country: US (occurrence: US)
  Receive Date: 20141107
  Receipt Date: 20141118
  Transmission Date: 20150529
  Serious: Yes (Hospitalization)
  Sender: FDA-Public Use
  Company Number: US-ACTELION-A-US2014-107605

PATIENT
  Age: 22 Year
  Sex: Female

DRUGS (4)
  1. LASIX [Concomitant]
     Active Substance: FUROSEMIDE
  2. OXYGEN. [Concomitant]
     Active Substance: OXYGEN
  3. VELETRI [Suspect]
     Active Substance: EPOPROSTENOL
     Indication: PULMONARY ARTERIAL HYPERTENSION
     Dosage: 164 NG/KG, PER MIN
     Route: 042
     Dates: start: 20110901
  4. ALDACTONE [Concomitant]
     Active Substance: SPIRONOLACTONE

REACTIONS (5)
  - Blood culture negative [Recovering/Resolving]
  - Catheter site discharge [Recovering/Resolving]
  - Catheter site pain [Recovering/Resolving]
  - Rash erythematous [Recovering/Resolving]
  - Catheter site cellulitis [Recovering/Resolving]

NARRATIVE: CASE EVENT DATE: 201409
